FAERS Safety Report 20695763 (Version 1)
Quarter: 2022Q2

REPORT INFORMATION
  Report Type: Spontaneous
  Country: JP (occurrence: JP)
  Receive Date: 20220411
  Receipt Date: 20220411
  Transmission Date: 20220721
  Serious: Yes (Death, Hospitalization)
  Sender: FDA-Public Use
  Company Number: JP-ELI_LILLY_AND_COMPANY-JP202204003233

PATIENT
  Age: 71 Year
  Sex: Female

DRUGS (12)
  1. TRULICITY [Suspect]
     Active Substance: DULAGLUTIDE
     Indication: Type 2 diabetes mellitus
     Dosage: 0.5 ML, WEEKLY (1/W)
     Route: 058
     Dates: start: 20181208
  2. REPAGLINIDE [Suspect]
     Active Substance: REPAGLINIDE
     Indication: Type 2 diabetes mellitus
     Dosage: 0.5 MG, BID
     Route: 048
     Dates: start: 20170728
  3. TOPIROXOSTAT [Concomitant]
     Active Substance: TOPIROXOSTAT
     Indication: Hyperuricaemia
     Dosage: 40 MG, DAILY
     Route: 048
  4. SODIUM FERROUS CITRATE [Concomitant]
     Active Substance: SODIUM FERROUS CITRATE
     Indication: Iron deficiency anaemia
     Dosage: 50 MG, DAILY
     Route: 048
  5. SENNOSIDE A [Concomitant]
     Active Substance: SENNOSIDE A
     Indication: Constipation
     Dosage: 24 MG, DAILY
     Route: 048
  6. ELIQUIS [Concomitant]
     Active Substance: APIXABAN
  7. TEPRENONE [Concomitant]
     Active Substance: TEPRENONE
  8. CARVEDILOL [Concomitant]
     Active Substance: CARVEDILOL
     Indication: Hypertension
  9. AMIODARONE HYDROCHLORIDE [Concomitant]
     Active Substance: AMIODARONE HYDROCHLORIDE
  10. LASIX FAIBLE [Concomitant]
     Indication: Cardiac failure congestive
  11. SPIRONOLACTONE [Concomitant]
     Active Substance: SPIRONOLACTONE
     Indication: Cardiac failure congestive
  12. SAMSCA [Concomitant]
     Active Substance: TOLVAPTAN
     Indication: Cardiac failure congestive

REACTIONS (2)
  - Cardiac failure acute [Fatal]
  - Cardiac failure congestive [Unknown]

NARRATIVE: CASE EVENT DATE: 20190511
